FAERS Safety Report 13696897 (Version 1)
Quarter: 2017Q2

REPORT INFORMATION
  Report Type: Spontaneous
  Country: US (occurrence: US)
  Receive Date: 20170627
  Receipt Date: 20170627
  Transmission Date: 20170830
  Serious: No
  Sender: FDA-Public Use
  Company Number: None

PATIENT
  Age: 54 Year
  Sex: Female
  Weight: 92.25 kg

DRUGS (1)
  1. GADOLINIUM [Suspect]
     Active Substance: GADOLINIUM
     Indication: NUCLEAR MAGNETIC RESONANCE IMAGING

REACTIONS (7)
  - Alopecia [None]
  - Myalgia [None]
  - Disturbance in attention [None]
  - Arthralgia [None]
  - Neuralgia [None]
  - Dry skin [None]
  - Hypoaesthesia [None]

NARRATIVE: CASE EVENT DATE: 20170209
